FAERS Safety Report 6125556-2 (Version None)
Quarter: 2009Q1

REPORT INFORMATION
  Report Type: 
  Country: None (occurrence: None)
  Receive Date: 20090320
  Receipt Date: 20090311
  Transmission Date: 20090719
  Serious: Yes (Hospitalization)
  Sender: FDA-Public Use
  Company Number: SE-ASTRAZENECA-2009SE01091

PATIENT
  Age: 39 Year
  Sex: Male

DRUGS (3)
  1. ZOMIG [Suspect]
     Indication: MIGRAINE
     Route: 045
  2. AVONEX [Concomitant]
  3. OMEPRAZOLE [Concomitant]

REACTIONS (1)
  - GRAND MAL CONVULSION [None]
